FAERS Safety Report 24182456 (Version 3)
Quarter: 2024Q3

REPORT INFORMATION
  Report Type: Spontaneous
  Country: US (occurrence: US)
  Receive Date: 20240807
  Receipt Date: 20240926
  Transmission Date: 20241017
  Serious: Yes (Other)
  Sender: AMGEN
  Company Number: US-AMGEN-USASP2024155061

PATIENT
  Age: 70 Year
  Sex: Male

DRUGS (8)
  1. OTEZLA [Suspect]
     Active Substance: APREMILAST
     Indication: Psoriatic arthropathy
     Dosage: 30 MILLIGRAM, BID
     Route: 048
  2. ARMOUR THYROID [Concomitant]
     Active Substance: THYROID, PORCINE
     Dosage: 180 MILLIGRAM
  3. ASPIRIN [Concomitant]
     Active Substance: ASPIRIN
     Dosage: 81 MILLIGRAM
  4. TAMSULOSIN [Concomitant]
     Active Substance: TAMSULOSIN
     Dosage: 0.4 MILLIGRAM
  5. VITAMIN D [Concomitant]
     Active Substance: VITAMIN D NOS
     Dosage: 1000 UNIT
  6. Metoprol retard [Concomitant]
     Dosage: 25 MILLIGRAM
  7. HUMIRA [Concomitant]
     Active Substance: ADALIMUMAB
     Dosage: 40 MILLIGRAM
  8. METOPROLOL TARTRATE [Concomitant]
     Active Substance: METOPROLOL TARTRATE
     Dosage: 25 MILLIGRAM

REACTIONS (3)
  - Psoriatic arthropathy [Not Recovered/Not Resolved]
  - Therapy non-responder [Not Recovered/Not Resolved]
  - Myalgia [Unknown]

NARRATIVE: CASE EVENT DATE: 20240701
